FAERS Safety Report 8495203-3 (Version None)
Quarter: 2012Q3

REPORT INFORMATION
  Report Type: 
  Country: None (occurrence: None)
  Receive Date: 20120709
  Receipt Date: 20120427
  Transmission Date: 20120928
  Serious: Yes (Death, Other)
  Sender: FDA-Public Use
  Company Number: CA-RANBAXY-2012US-56214

PATIENT
  Age: 15 Year
  Sex: Female

DRUGS (1)
  1. MINOCYCLINE HCL [Suspect]
     Indication: ACNE
     Route: 065

REACTIONS (1)
  - LUPUS-LIKE SYNDROME [None]
